FAERS Safety Report 5108046-5 (Version None)
Quarter: 2006Q3

REPORT INFORMATION
  Report Type: 
  Country: None (occurrence: None)
  Receive Date: 20060915
  Receipt Date: 20060830
  Transmission Date: 20061208
  Serious: Yes (Hospitalization)
  Sender: FDA-Public Use
  Company Number: US-2006-024153

PATIENT
  Age: 46 Year
  Sex: Male
  Weight: 83.9 kg

DRUGS (13)
  1. BETASERON [Suspect]
     Indication: SECONDARY PROGRESSIVE MULTIPLE SCLEROSIS
     Dosage: 9.6 MIU, EVERY 2D, SUBCUTANEOUS
     Route: 058
     Dates: start: 19900101, end: 20030101
  2. VANCOMYCIN [Suspect]
     Indication: CELLULITIS
     Dosage: INTRAVENOUS
     Route: 042
     Dates: start: 20031101, end: 20031101
  3. CYLERT [Concomitant]
  4. FOSAMAX [Concomitant]
  5. SUDAFED 12 HOUR [Concomitant]
  6. TYLENOL [Concomitant]
  7. METHOCARBAMATE [Concomitant]
  8. STOOL SOFTENERS [Concomitant]
  9. COLACE (DOCUSATE SODIUM) [Concomitant]
  10. LACTINEX (LACTOBACILLUS BULGARICUS) [Concomitant]
  11. FLAGYL [Concomitant]
  12. REGLAN /USA/ (METOCLOPRAMIDE HYDROCHLORIDE) [Concomitant]
  13. MORPHINE [Concomitant]

REACTIONS (23)
  - ASTHENIA [None]
  - BACTEROIDES INFECTION [None]
  - BLOOD PRESSURE SYSTOLIC INCREASED [None]
  - CELLULITIS [None]
  - CHILLS [None]
  - CONSTIPATION [None]
  - DECUBITUS ULCER [None]
  - DIARRHOEA [None]
  - HEADACHE [None]
  - HYPOAESTHESIA [None]
  - HYPOKALAEMIA [None]
  - IMPAIRED HEALING [None]
  - INFECTED SKIN ULCER [None]
  - INJECTION SITE REACTION [None]
  - NAIL CANDIDA [None]
  - NAUSEA [None]
  - PYREXIA [None]
  - RESPIRATORY RATE INCREASED [None]
  - SKIN CANDIDA [None]
  - SUBCUTANEOUS ABSCESS [None]
  - TACHYCARDIA [None]
  - URINARY RETENTION [None]
  - WOUND [None]
